FAERS Safety Report 17219236 (Version 1)
Quarter: 2019Q4

REPORT INFORMATION
  Report Type: Spontaneous
  Country: US (occurrence: US)
  Receive Date: 20191231
  Receipt Date: 20191231
  Transmission Date: 20200122
  Serious: No
  Sender: FDA-Public Use
  Company Number: US-JNJFOC-20191236925

PATIENT
  Age: 62 Year
  Sex: Female

DRUGS (1)
  1. SIMPONI [Suspect]
     Active Substance: GOLIMUMAB
     Indication: PRODUCT USED FOR UNKNOWN INDICATION
     Route: 058
     Dates: start: 201909

REACTIONS (7)
  - Alopecia [Unknown]
  - Night sweats [Unknown]
  - Skin lesion [Unknown]
  - Arthralgia [Unknown]
  - Cyst [Unknown]
  - Urine analysis abnormal [Unknown]
  - Rash [Unknown]

NARRATIVE: CASE EVENT DATE: 20191218
